FAERS Safety Report 4821812-6 (Version None)
Quarter: 2005Q4

REPORT INFORMATION
  Report Type: 
  Country: None (occurrence: None)
  Receive Date: 20051103
  Receipt Date: 20051025
  Transmission Date: 20060501
  Serious: Yes (Hospitalization)
  Sender: FDA-Public Use
  Company Number: EWC050945999

PATIENT
  Age: 45 Year
  Sex: Male

DRUGS (2)
  1. HUMULIN 70/30 [Suspect]
     Indication: DIABETES MELLITUS
     Dates: end: 20050917
  2. HUMULIN R [Suspect]
     Indication: DIABETES MELLITUS
     Dates: start: 20050917

REACTIONS (4)
  - BLOOD GLUCOSE INCREASED [None]
  - DIABETES MELLITUS INADEQUATE CONTROL [None]
  - DRUG DEPENDENCE [None]
  - DRUG INEFFECTIVE [None]
